FAERS Safety Report 4267057-2 (Version None)
Quarter: 2004Q1

REPORT INFORMATION
  Report Type: 
  Country: None (occurrence: None)
  Receive Date: 20040107
  Receipt Date: 20031229
  Transmission Date: 20041129
  Serious: Yes (Life-Threatening)
  Sender: FDA-Public Use
  Company Number: GB-JNJFOC-20031205234

PATIENT
  Age: 25 Year
  Sex: Female
  Weight: 44.8 kg

DRUGS (3)
  1. REMICADE [Suspect]
     Indication: CROHN'S DISEASE
     Dosage: 300 MG, INTRAVENOUS
     Route: 042
     Dates: end: 20031208
  2. VENTOLIN [Concomitant]
  3. ASACOL [Concomitant]

REACTIONS (2)
  - CYANOSIS [None]
  - DYSPNOEA [None]
